FAERS Safety Report 19409195 (Version 2)
Quarter: 2021Q3

REPORT INFORMATION
  Report Type: Spontaneous
  Country: US (occurrence: US)
  Receive Date: 20210614
  Receipt Date: 20210726
  Transmission Date: 20211014
  Serious: Yes (Other)
  Sender: FDA-Public Use
  Company Number: US-PURDUE-USA-2020-0204346

PATIENT
  Sex: Female

DRUGS (8)
  1. OXYCONTIN [Suspect]
     Active Substance: OXYCODONE HYDROCHLORIDE
     Indication: PAIN
     Dosage: UNKNOWN
     Route: 048
  2. OXYCONTIN [Suspect]
     Active Substance: OXYCODONE HYDROCHLORIDE
     Dosage: 10 MG, UNK
     Route: 048
     Dates: start: 1996
  3. OXYCONTIN [Suspect]
     Active Substance: OXYCODONE HYDROCHLORIDE
     Dosage: 80 MG, TID
     Route: 048
  4. NORFLEX [Suspect]
     Active Substance: ORPHENADRINE CITRATE
     Indication: PAIN
     Dosage: UNKNOWN
     Route: 065
  5. OXYCONTIN [Suspect]
     Active Substance: OXYCODONE HYDROCHLORIDE
     Dosage: 20 MG, UNK
     Route: 048
  6. OXYCONTIN [Suspect]
     Active Substance: OXYCODONE HYDROCHLORIDE
     Dosage: 40 MG, UNK
     Route: 048
     Dates: start: 19991220, end: 20000217
  7. HYDROCODONE BITARTRATE AND ACETAMINOPHEN [Suspect]
     Active Substance: ACETAMINOPHEN\HYDROCODONE BITARTRATE
     Indication: PAIN
     Dosage: 10/650MG
     Route: 048
     Dates: start: 19991003, end: 19991210
  8. DURAGESIC [Suspect]
     Active Substance: FENTANYL
     Indication: PAIN
     Dosage: 75 MCG, UNK
     Route: 062
     Dates: start: 199711

REACTIONS (18)
  - Drug withdrawal syndrome [Unknown]
  - Tooth loss [Unknown]
  - Chest pain [Unknown]
  - Drug dependence [Unknown]
  - Illness [Unknown]
  - Psychotic behaviour [Unknown]
  - Unevaluable event [Unknown]
  - Asthenia [Unknown]
  - Pain [Unknown]
  - Emotional distress [Unknown]
  - Dry mouth [Unknown]
  - Dental caries [Unknown]
  - Spinal column injury [Unknown]
  - Lumbar spinal stenosis [Unknown]
  - Insomnia [Unknown]
  - Arthralgia [Unknown]
  - Neck pain [Unknown]
  - Fatigue [Unknown]

NARRATIVE: CASE EVENT DATE: 20000601
